FAERS Safety Report 4503880-4 (Version None)
Quarter: 2004Q4

REPORT INFORMATION
  Report Type: 
  Country: None (occurrence: None)
  Receive Date: 20041115
  Receipt Date: 20041102
  Transmission Date: 20050328
  Serious: Yes (Other)
  Sender: FDA-Public Use
  Company Number: 2004079258

PATIENT
  Age: 39 Year
  Sex: Male
  Weight: 90 kg

DRUGS (8)
  1. CARDENALIN (DOXAZOSIN) [Suspect]
     Indication: HYPERTENSION
     Dosage: 5 MG (5 MG, 1 IN 1 D), ORAL
     Route: 048
     Dates: start: 20040427, end: 20040525
  2. PROPOFOL [Suspect]
     Indication: ANAESTHESIA
     Dosage: (100 MG, ONCE), INTRAVENOUS
     Route: 042
     Dates: start: 20040525, end: 20040525
  3. FENTANYL CITRATE [Suspect]
     Indication: ANAESTHESIA
     Dosage: 4 ML (4 ML, ONCE), INTRAVENOUS
     Route: 042
     Dates: start: 20040525, end: 20040525
  4. VECURONIUM (VECURONIUM) [Suspect]
     Indication: ANAESTHESIA
     Dosage: INTRAVENOUS
     Route: 042
     Dates: start: 20040525, end: 20040525
  5. SEVOFLURANE [Suspect]
     Indication: ANAESTHESIA
     Dosage: INHALATION
     Route: 055
     Dates: start: 20040525, end: 20040525
  6. OXYGEN (OXYGEN) [Suspect]
     Indication: ILL-DEFINED DISORDER
     Dosage: INHALATION
     Route: 055
     Dates: start: 20040525
  7. ETILEPHRINE HYDROCHLORIDE (ETILEPHRINE HYDROCHLORIDE) [Concomitant]
  8. PHENYEPHRINE (PHENYLEPHRINE) [Concomitant]

REACTIONS (5)
  - ANAESTHETIC COMPLICATION [None]
  - DEHYDRATION [None]
  - FLUID IMBALANCE [None]
  - HYPOTENSION [None]
  - MARKEDLY REDUCED DIETARY INTAKE [None]
